FAERS Safety Report 14842967 (Version 1)
Quarter: 2018Q2

REPORT INFORMATION
  Report Type: Spontaneous
  Country: US (occurrence: US)
  Receive Date: 20180503
  Receipt Date: 20180503
  Transmission Date: 20180711
  Serious: No
  Sender: FDA-Public Use
  Company Number: US-009507513-1804USA010415

PATIENT
  Age: 32 Year
  Sex: Female
  Weight: 55.78 kg

DRUGS (4)
  1. NEXPLANON [Suspect]
     Active Substance: ETONOGESTREL
     Indication: CONTRACEPTION
     Dosage: 1 IMPLANT, FOR 3 YEARS, LEFT ARM
     Route: 059
     Dates: start: 20170930
  2. TRAMADOL HYDROCHLORIDE. [Concomitant]
     Active Substance: TRAMADOL HYDROCHLORIDE
  3. OMEPRAZOLE. [Concomitant]
     Active Substance: OMEPRAZOLE
  4. SEROQUEL [Concomitant]
     Active Substance: QUETIAPINE FUMARATE

REACTIONS (6)
  - Feeling abnormal [Unknown]
  - Alopecia [Unknown]
  - Implant site pruritus [Unknown]
  - Menorrhagia [Unknown]
  - Implant site pain [Unknown]
  - Asthenia [Unknown]

NARRATIVE: CASE EVENT DATE: 20170930
